FAERS Safety Report 10780333 (Version 1)
Quarter: 2015Q1

REPORT INFORMATION
  Report Type: Spontaneous
  Country: US (occurrence: None)
  Receive Date: 20150209
  Receipt Date: 20150209
  Transmission Date: 20150721
  Serious: No
  Sender: FDA-Public Use
  Company Number: None

PATIENT
  Sex: Female

DRUGS (1)
  1. LIOTHYRONINE SODIUM. [Suspect]
     Active Substance: LIOTHYRONINE SODIUM

REACTIONS (7)
  - Anxiety [None]
  - Product formulation issue [None]
  - Product quality issue [None]
  - Product dosage form issue [None]
  - Suicidal behaviour [None]
  - Depression [None]
  - Job dissatisfaction [None]

NARRATIVE: CASE EVENT DATE: 2014
